FAERS Safety Report 6823387-9 (Version None)
Quarter: 2010Q3

REPORT INFORMATION
  Report Type: 
  Country: None (occurrence: None)
  Receive Date: 20100708
  Receipt Date: 20100630
  Transmission Date: 20110219
  Serious: Yes (Other)
  Sender: FDA-Public Use
  Company Number: BR-PFIZER INC-2010081704

PATIENT
  Age: 55 Year
  Sex: Female

DRUGS (6)
  1. CELEBRA [Suspect]
     Indication: NECK PAIN
     Dosage: 400 MG, 1X/DAY
     Route: 048
     Dates: start: 20090630
  2. CELEBRA [Suspect]
     Dosage: 200 MG, 1X/DAY
     Route: 048
  3. RIVOTRIL [Concomitant]
     Dosage: UNK
  4. AMLODIPINE BESILATE [Concomitant]
     Dosage: UNK
  5. AMITRIL [Concomitant]
     Dosage: UNK
  6. ENALAPRIL MALEATE [Concomitant]
     Dosage: UNK

REACTIONS (4)
  - CARPAL TUNNEL SYNDROME [None]
  - MEMORY IMPAIRMENT [None]
  - PAIN IN EXTREMITY [None]
  - SKIN DISORDER [None]
